FAERS Safety Report 8777820 (Version 1)
Quarter: 2012Q4

REPORT INFORMATION
  Report Type: 
  Country: PH (occurrence: PH)
  Receive Date: 20120911
  Receipt Date: 20120911
  Transmission Date: 20130627
  Serious: Yes (Other)
  Sender: FDA-Public Use
  Company Number: PHHY2012PH070749

PATIENT
  Age: 47 Year
  Sex: Male

DRUGS (1)
  1. GILENYA [Suspect]
     Indication: RELAPSING-REMITTING MULTIPLE SCLEROSIS
     Dosage: 500 ug, UNK
     Route: 048
     Dates: start: 20120814

REACTIONS (2)
  - Sinus arrhythmia [Recovering/Resolving]
  - Bradycardia [Recovering/Resolving]
